FAERS Safety Report 19238423 (Version 2)
Quarter: 2022Q1

REPORT INFORMATION
  Report Type: Report from Study
  Country: US (occurrence: US)
  Receive Date: 20210510
  Receipt Date: 20220303
  Transmission Date: 20220424
  Serious: Yes (Other)
  Sender: FDA-Public Use
  Company Number: US-BRISTOL-MYERS SQUIBB COMPANY-BMS-2021-043744

PATIENT
  Age: 19 Year
  Sex: Female
  Weight: 86.2 kg

DRUGS (4)
  1. NIVOLUMAB [Suspect]
     Active Substance: NIVOLUMAB
     Indication: Hodgkin^s disease
     Dosage: 240 MG ON DAYS 1 AND 15, TOTAL DOSE ADMINISTERED 480 MILLIGRAM
     Route: 042
     Dates: start: 20201015, end: 20210316
  2. DACARBAZINE [Suspect]
     Active Substance: DACARBAZINE
     Indication: Hodgkin^s disease
     Dosage: 375 MG/M2 ON DAYS 1 AND 15, TOTAL DOSE ADMINISTERED 1600 MILLIGRAM
     Route: 042
     Dates: start: 20201015, end: 20210316
  3. DOXORUBICIN HYDROCHLORIDE [Suspect]
     Active Substance: DOXORUBICIN HYDROCHLORIDE
     Indication: Hodgkin^s disease
     Dosage: 25 MG/M2 ON DAYS 1 AND 15, TOTAL DOSE ADMINISTERED 106 MILLIGRAM
     Route: 042
     Dates: start: 20201015, end: 20210316
  4. VINBLASTINE SULFATE [Suspect]
     Active Substance: VINBLASTINE SULFATE
     Indication: Hodgkin^s disease
     Dosage: 6 MG/M2 ON DAYS 1 AND 15, TOTAL DOSE ADMINISTERED WAS 26 MG
     Route: 042
     Dates: start: 20201015, end: 20210316

REACTIONS (2)
  - Migraine [Recovered/Resolved with Sequelae]
  - Seizure [Recovered/Resolved with Sequelae]

NARRATIVE: CASE EVENT DATE: 20210321
